FAERS Safety Report 10235366 (Version 1)
Quarter: 2014Q2

REPORT INFORMATION
  Report Type: Spontaneous
  Country: US (occurrence: US)
  Receive Date: 20140613
  Receipt Date: 20140613
  Transmission Date: 20141212
  Serious: No
  Sender: FDA-Public Use
  Company Number: US-PFIZER INC-2014161332

PATIENT
  Sex: Female

DRUGS (1)
  1. PROPANOLOL HCL [Suspect]
     Indication: ATRIAL FIBRILLATION
     Dosage: UNK

REACTIONS (1)
  - Drug ineffective [Unknown]
